FAERS Safety Report 16469704 (Version 2)
Quarter: 2019Q2

REPORT INFORMATION
  Report Type: Report from Study
  Country: US (occurrence: US)
  Receive Date: 20190624
  Receipt Date: 20190627
  Transmission Date: 20190711
  Serious: No
  Sender: FDA-Public Use
  Company Number: US-SA-2019SA168221

PATIENT
  Age: 27 Year
  Sex: Male

DRUGS (2)
  1. LARONIDASE [Suspect]
     Active Substance: LARONIDASE
     Indication: MUCOPOLYSACCHARIDOSIS I
     Dosage: 23.2 MG Q1
     Route: 065
     Dates: start: 20060705
  2. LARONIDASE [Suspect]
     Active Substance: LARONIDASE
     Dosage: 23.20;Q1
     Route: 041
     Dates: start: 20170613

REACTIONS (1)
  - Visual impairment [Unknown]
